FAERS Safety Report 17218425 (Version 1)
Quarter: 2019Q4

REPORT INFORMATION
  Report Type: Spontaneous
  Country: AT (occurrence: AT)
  Receive Date: 20191231
  Receipt Date: 20191231
  Transmission Date: 20200122
  Serious: Yes (Other)
  Sender: FDA-Public Use
  Company Number: AT-TEVA-2019-AT-1158937

PATIENT
  Age: 50 Year
  Sex: Female

DRUGS (2)
  1. THROMBO ASS [Concomitant]
     Active Substance: ASPIRIN
  2. RATIODOLOR IBUPROFEN 300 MG SCHMERZTABLETTEN [Suspect]
     Active Substance: IBUPROFEN
     Route: 048
     Dates: start: 20191022, end: 20191022

REACTIONS (4)
  - Sensation of foreign body [Recovered/Resolved]
  - Type I hypersensitivity [Recovered/Resolved]
  - Conjunctival oedema [Recovered/Resolved]
  - Swollen tongue [Recovered/Resolved]

NARRATIVE: CASE EVENT DATE: 20191022
